FAERS Safety Report 18082657 (Version 7)
Quarter: 2020Q3

REPORT INFORMATION
  Report Type: Spontaneous
  Country: PK (occurrence: PK)
  Receive Date: 20200729
  Receipt Date: 20200922
  Transmission Date: 20201103
  Serious: Yes (Hospitalization, Disabling, Other)
  Sender: FDA-Public Use
  Company Number: PK-ROCHE-2649018

PATIENT
  Age: 52 Year
  Sex: Male

DRUGS (2)
  1. AVASTIN [Suspect]
     Active Substance: BEVACIZUMAB
     Indication: RETINOPATHY
     Route: 050
     Dates: start: 202002
  2. AVASTIN [Suspect]
     Active Substance: BEVACIZUMAB
     Dosage: DOSE 2.5 MG/0.1 ML, FREQUENCY MONTHLY
     Route: 050
     Dates: start: 20200717, end: 20200717

REACTIONS (8)
  - Blindness [Unknown]
  - Pain [Unknown]
  - Enterobacter test positive [Unknown]
  - Suspected transmission of an infectious agent via product [Unknown]
  - Endophthalmitis [Not Recovered/Not Resolved]
  - Suspected counterfeit product [Unknown]
  - Visual impairment [Unknown]
  - Off label use [Unknown]

NARRATIVE: CASE EVENT DATE: 20200718
